FAERS Safety Report 20080718 (Version 1)
Quarter: 2021Q4

REPORT INFORMATION
  Report Type: Spontaneous
  Country: US (occurrence: US)
  Receive Date: 20211117
  Receipt Date: 20211117
  Transmission Date: 20220303
  Serious: Yes (Hospitalization)
  Sender: FDA-Public Use
  Company Number: US-MYLANLABS-2021M1084439

PATIENT
  Age: 55 Year
  Sex: Female

DRUGS (6)
  1. FUROSEMIDE [Suspect]
     Active Substance: FUROSEMIDE
     Indication: Acute kidney injury
     Dosage: HIGH DOSE
     Route: 065
  2. FUROSEMIDE [Suspect]
     Active Substance: FUROSEMIDE
     Indication: Generalised oedema
  3. FUROSEMIDE [Suspect]
     Active Substance: FUROSEMIDE
     Indication: Hyponatraemia
  4. METOLAZONE [Suspect]
     Active Substance: METOLAZONE
     Indication: Acute kidney injury
     Dosage: UNK
     Route: 065
  5. METOLAZONE [Suspect]
     Active Substance: METOLAZONE
     Indication: Hyponatraemia
  6. METOLAZONE [Suspect]
     Active Substance: METOLAZONE
     Indication: Generalised oedema

REACTIONS (2)
  - Hyponatraemia [Recovering/Resolving]
  - Drug ineffective [Unknown]
